FAERS Safety Report 24588792 (Version 1)
Quarter: 2024Q4

REPORT INFORMATION
  Report Type: Spontaneous
  Country: ES (occurrence: ES)
  Receive Date: 20241107
  Receipt Date: 20241107
  Transmission Date: 20250115
  Serious: Yes (Other)
  Sender: BRACCO
  Company Number: ES-BRACCO-2024ES06650

PATIENT
  Age: 69 Year
  Sex: Male

DRUGS (1)
  1. PROHANCE [Suspect]
     Active Substance: GADOTERIDOL
     Indication: Product used for unknown indication
     Dosage: UNK, SINGLE
     Dates: start: 20241001, end: 20241001

REACTIONS (4)
  - Product storage error [Unknown]
  - Pruritus [Recovered/Resolved]
  - Erythema [Recovered/Resolved]
  - Urticaria [Recovered/Resolved]

NARRATIVE: CASE EVENT DATE: 20241001
